FAERS Safety Report 22921415 (Version 2)
Quarter: 2024Q3

REPORT INFORMATION
  Report Type: Spontaneous
  Country: US (occurrence: None)
  Receive Date: 20230908
  Receipt Date: 20240906
  Transmission Date: 20241017
  Serious: No
  Sender: DOMPE FARMACEUTICI
  Company Number: US-FARMAPROD-202306-1749

PATIENT
  Age: 79 Year
  Sex: Female

DRUGS (17)
  1. OXERVATE [Suspect]
     Active Substance: CENEGERMIN-BKBJ
     Indication: Neurotrophic keratopathy
     Route: 047
     Dates: start: 20230606, end: 20230802
  2. OXERVATE [Suspect]
     Active Substance: CENEGERMIN-BKBJ
     Route: 047
     Dates: start: 20230914
  3. OXERVATE [Suspect]
     Active Substance: CENEGERMIN-BKBJ
  4. XIIDRA [Concomitant]
     Active Substance: LIFITEGRAST
  5. SIMVASTATIN [Concomitant]
     Active Substance: SIMVASTATIN
  6. REFRESH DIGITAL PF [Concomitant]
     Active Substance: CARBOXYMETHYLCELLULOSE SODIUM\GLYCERIN\POLYSORBATE 80
  7. MULTIVITAMIN GUMMIES [Concomitant]
  8. VITAMIN B COMPLEX [Concomitant]
     Active Substance: CYANOCOBALAMIN\DEXPANTHENOL\NIACINAMIDE\PYRIDOXINE HYDROCHLORIDE\RIBOFLAVIN 5^-PHOSPHATE SODIUM\THIA
  9. VITAMIN C [Concomitant]
     Active Substance: ASCORBIC ACID
  10. VITAMIN D-400 [Concomitant]
  11. COD LIVER OIL [Concomitant]
     Active Substance: COD LIVER OIL
  12. COENZYME Q10 [Concomitant]
     Active Substance: DIETARY SUPPLEMENT\UBIDECARENONE
     Dosage: 100 MG-5
  13. VITAMIN B12 [Concomitant]
     Active Substance: CYANOCOBALAMIN
  14. ALPHA LIPOIC ACID [Concomitant]
     Active Substance: .ALPHA.-LIPOIC ACID
  15. LACRILUBE [Concomitant]
  16. SERUM TEARS [Concomitant]
  17. NEOMYCIN-POLYMYXIN-HYDROCORTISONE [Concomitant]

REACTIONS (9)
  - Ear pain [Unknown]
  - Eye swelling [Unknown]
  - Aphonia [Unknown]
  - Hordeolum [Not Recovered/Not Resolved]
  - Drug ineffective [Unknown]
  - Urinary tract infection [Unknown]
  - Eye pain [Unknown]
  - Eyelid irritation [Unknown]
  - Headache [Unknown]

NARRATIVE: CASE EVENT DATE: 20230601
